FAERS Safety Report 12298605 (Version 1)
Quarter: 2016Q2

REPORT INFORMATION
  Report Type: Spontaneous
  Country: FR (occurrence: FR)
  Receive Date: 20160425
  Receipt Date: 20160425
  Transmission Date: 20160815
  Serious: Yes (Other)
  Sender: FDA-Public Use
  Company Number: FR-009507513-1604FRA014029

PATIENT
  Age: 83 Year
  Sex: Male
  Weight: 62 kg

DRUGS (1)
  1. CHIBRO-PROSCAR [Suspect]
     Active Substance: FINASTERIDE
     Indication: URINARY RETENTION
     Dosage: 5 MG (1 TABLET), QD
     Route: 048
     Dates: start: 2010

REACTIONS (2)
  - Throat cancer [Unknown]
  - Breast pain [Unknown]

NARRATIVE: CASE EVENT DATE: 201404
